FAERS Safety Report 25307582 (Version 2)
Quarter: 2025Q2

REPORT INFORMATION
  Report Type: Spontaneous
  Country: CN (occurrence: CN)
  Receive Date: 20250513
  Receipt Date: 20250521
  Transmission Date: 20250717
  Serious: Yes (Hospitalization)
  Sender: NOVARTIS
  Company Number: CN-002147023-NVSC2025CN076334

PATIENT
  Age: 36 Year
  Sex: Male
  Weight: 78 kg

DRUGS (1)
  1. NILOTINIB [Suspect]
     Active Substance: NILOTINIB
     Indication: Targeted cancer therapy
     Dosage: 300 MG, BID (Q12H)
     Route: 048
     Dates: start: 20250328, end: 20250508

REACTIONS (2)
  - Diarrhoea [Recovering/Resolving]
  - Abnormal faeces [Recovering/Resolving]

NARRATIVE: CASE EVENT DATE: 20250414
